FAERS Safety Report 9837558 (Version 1)
Quarter: 2014Q1

REPORT INFORMATION
  Report Type: Spontaneous
  Country: GB (occurrence: GB)
  Receive Date: 20140123
  Receipt Date: 20140123
  Transmission Date: 20141002
  Serious: Yes (Hospitalization, Other)
  Sender: FDA-Public Use
  Company Number: GB-TEVA-456699ISR

PATIENT
  Age: 70 Year
  Sex: Female
  Weight: 72 kg

DRUGS (8)
  1. NITROFURANTOIN [Suspect]
     Indication: PROPHYLAXIS
     Dosage: 50 MILLIGRAM DAILY; INIDCATION: PROPHYLAXIS FOR RECURRENT UTIS
     Route: 048
     Dates: start: 201210, end: 20131118
  2. AMITRIPTYLINE [Concomitant]
  3. ASPIRIN [Concomitant]
  4. ATORVASTATIN [Concomitant]
  5. BISOPROLOL [Concomitant]
  6. ENALAPRIL [Concomitant]
  7. TOLTERODINE [Concomitant]
  8. AMLODIPINE [Concomitant]

REACTIONS (2)
  - Liver function test abnormal [Recovering/Resolving]
  - Immunoglobulins increased [Unknown]
